FAERS Safety Report 4441560-4 (Version None)
Quarter: 2004Q3

REPORT INFORMATION
  Report Type: 
  Country: None (occurrence: None)
  Receive Date: 20040728
  Receipt Date: 20040415
  Transmission Date: 20050211
  Serious: Yes (Hospitalization)
  Sender: FDA-Public Use
  Company Number: US_0404102352

PATIENT
  Age: 6 Year
  Sex: Male
  Weight: 23 kg

DRUGS (3)
  1. STRATTERA [Suspect]
     Indication: ATTENTION DEFICIT/HYPERACTIVITY DISORDER
     Dosage: 18 MG DAY
     Dates: start: 20040406, end: 20040408
  2. DEPAKENE [Concomitant]
  3. RISPERDAL [Concomitant]

REACTIONS (1)
  - ANGIONEUROTIC OEDEMA [None]
